FAERS Safety Report 7905134-2 (Version None)
Quarter: 2011Q4

REPORT INFORMATION
  Report Type: 
  Country: None (occurrence: None)
  Receive Date: 20111109
  Receipt Date: 20111025
  Transmission Date: 20120403
  Serious: Yes (Other)
  Sender: FDA-Public Use
  Company Number: US-WATSON-2011-18938

PATIENT
  Age: 18 Year
  Sex: Male

DRUGS (3)
  1. IMURAN [Suspect]
     Indication: PEMPHIGUS
  2. PREDNISONE [Suspect]
     Indication: PEMPHIGUS
     Dosage: 1500 MG DAILY
  3. MYOCHRYSINE [Suspect]
     Indication: PEMPHIGUS

REACTIONS (4)
  - DIABETES MELLITUS [None]
  - URINARY TRACT INFECTION [None]
  - CELLULITIS [None]
  - WEIGHT INCREASED [None]
